FAERS Safety Report 25578412 (Version 2)
Quarter: 2025Q4

REPORT INFORMATION
  Report Type: Report from Study
  Country: US (occurrence: US)
  Receive Date: 20250718
  Receipt Date: 20251205
  Transmission Date: 20260118
  Serious: No
  Sender: ABBVIE
  Company Number: US-ABBVIE-6369036

PATIENT
  Age: 77 Year
  Sex: Female

DRUGS (1)
  1. VYALEV [Suspect]
     Active Substance: FOSCARBIDOPA\FOSLEVODOPA
     Indication: Parkinson^s disease
     Route: 058
     Dates: start: 202505

REACTIONS (8)
  - Fatigue [Not Recovered/Not Resolved]
  - Infusion site infection [Unknown]
  - Infusion site reaction [Not Recovered/Not Resolved]
  - Infusion site erythema [Unknown]
  - Infusion site infection [Not Recovered/Not Resolved]
  - Infusion site bruising [Unknown]
  - Infusion site abscess [Unknown]
  - Weight decreased [Unknown]

NARRATIVE: CASE EVENT DATE: 20250101
